FAERS Safety Report 6675678-2 (Version None)
Quarter: 2010Q2

REPORT INFORMATION
  Report Type: 
  Country: None (occurrence: None)
  Receive Date: 20100409
  Receipt Date: 20100326
  Transmission Date: 20101027
  Serious: Yes (Hospitalization)
  Sender: FDA-Public Use
  Company Number: US-ELI_LILLY_AND_COMPANY-US201003008556

PATIENT
  Sex: Female

DRUGS (13)
  1. FORTEO [Suspect]
     Indication: OSTEOPOROSIS
     Dosage: 20 UG, DAILY (1/D)
     Dates: start: 20091201, end: 20100315
  2. TRANXENE [Concomitant]
     Dosage: 3.75 MG, 3/D
  3. LAMOTRIGINE [Concomitant]
     Dosage: 625 MG, DAILY (1/D)
  4. ALLEGRA [Concomitant]
     Dosage: 180 MG, DAILY (1/D)
  5. ZONISAMIDE [Concomitant]
     Dosage: 400 MG, DAILY (1/D)
  6. CELEBREX [Concomitant]
     Dosage: UNK, DAILY (1/D)
  7. OMEPRAZOLE [Concomitant]
     Dosage: 20 MG, DAILY (1/D)
  8. LYRICA [Concomitant]
     Dosage: 100 MG, 3/D
  9. CALCIUM [Concomitant]
     Dosage: 1800 MG, DAILY (1/D)
  10. TOPROL-XL [Concomitant]
     Dosage: 25 MG, DAILY (1/D)
  11. MACRODANTIN [Concomitant]
     Dosage: 100 MG, DAILY (1/D)
  12. SERTRALINE HCL [Concomitant]
     Dosage: 50 MG, DAILY (1/D)
  13. MULTI-VITAMIN [Concomitant]
     Dosage: UNK, DAILY (1/D)

REACTIONS (1)
  - KNEE ARTHROPLASTY [None]
